FAERS Safety Report 8211294-9 (Version None)
Quarter: 2012Q1

REPORT INFORMATION
  Report Type: 
  Country: None (occurrence: None)
  Receive Date: 20120315
  Receipt Date: 20120312
  Transmission Date: 20120608
  Serious: Yes (Hospitalization, Other)
  Sender: FDA-Public Use
  Company Number: US-PFIZER INC-2012065514

PATIENT
  Age: 47 Year
  Sex: Female
  Weight: 56.7 kg

DRUGS (3)
  1. XALKORI [Suspect]
     Indication: LUNG NEOPLASM MALIGNANT
     Dosage: UNK
  2. NIMBEX [Concomitant]
     Dosage: UNK
  3. VORICONAZOLE [Concomitant]
     Dosage: UNK

REACTIONS (3)
  - DISEASE PROGRESSION [None]
  - LUNG NEOPLASM MALIGNANT [None]
  - PNEUMONIA [None]
